FAERS Safety Report 6941970-7 (Version None)
Quarter: 2010Q3

REPORT INFORMATION
  Report Type: 
  Country: None (occurrence: None)
  Receive Date: 20100826
  Receipt Date: 20100823
  Transmission Date: 20110219
  Serious: Yes (Death)
  Sender: FDA-Public Use
  Company Number: US-SANOFI-AVENTIS-2010SA034337

PATIENT
  Age: 65 Year
  Sex: Male
  Weight: 83 kg

DRUGS (16)
  1. ELOXATIN [Suspect]
     Indication: PANCREATIC CARCINOMA METASTATIC
     Route: 041
     Dates: start: 20100127, end: 20100127
  2. ELOXATIN [Suspect]
     Route: 041
     Dates: start: 20100512, end: 20100512
  3. CAPECITABINE [Suspect]
     Indication: PANCREATIC CARCINOMA METASTATIC
     Dosage: DAY 1-14
     Route: 048
     Dates: start: 20100127, end: 20100528
  4. AMOXICILLIN AND CLAVULANATE POTASSIUM [Concomitant]
  5. COMPAZINE [Concomitant]
  6. LATANOPROST [Concomitant]
  7. LORAZEPAM [Concomitant]
  8. LOTEPREDNOL ETABONATE [Concomitant]
  9. ONDANSETRON HYDROCHLORIDE [Concomitant]
  10. PROPRANOLOL [Concomitant]
  11. REPAGLINIDE [Concomitant]
  12. ROSUVASTATIN [Concomitant]
  13. SERAX [Concomitant]
  14. SILDENAFIL [Concomitant]
  15. ACETAMINOPHEN [Concomitant]
  16. LOPERAMIDE [Concomitant]

REACTIONS (1)
  - ARRHYTHMIA [None]
